FAERS Safety Report 14334189 (Version 1)
Quarter: 2017Q4

REPORT INFORMATION
  Report Type: Spontaneous
  Country: GB (occurrence: GB)
  Receive Date: 20171228
  Receipt Date: 20171228
  Transmission Date: 20180321
  Serious: Yes (Disabling, Other)
  Sender: FDA-Public Use
  Company Number: GB-TEVA-2017-GB-837407

PATIENT
  Age: 63 Year
  Sex: Male
  Weight: 128 kg

DRUGS (37)
  1. MAGNESIUM ACETATE [Concomitant]
     Active Substance: MAGNESIUM ACETATE
  2. ALFACALCIDOL [Concomitant]
     Active Substance: ALFACALCIDOL
  3. TAZOCIN [Concomitant]
     Active Substance: PIPERACILLIN SODIUM\TAZOBACTAM SODIUM
  4. EPLERENONE. [Concomitant]
     Active Substance: EPLERENONE
  5. GLYCEROL [Concomitant]
     Active Substance: GLYCERIN
  6. ENOXAPARIN SODIUM. [Concomitant]
     Active Substance: ENOXAPARIN SODIUM
  7. CASPOFUNGIN [Suspect]
     Active Substance: CASPOFUNGIN
     Indication: ENDOCARDITIS CANDIDA
     Dosage: IMMEDIATE (STAT).
     Dates: start: 20171113, end: 20171113
  8. OXYCODONE HYDROCHLORIDE. [Concomitant]
     Active Substance: OXYCODONE HYDROCHLORIDE
  9. AMOXICILLIN. [Concomitant]
     Active Substance: AMOXICILLIN
     Indication: ENDOCARDITIS CANDIDA
  10. DIAZEPAM. [Concomitant]
     Active Substance: DIAZEPAM
  11. INSULIN GLULISINE [Concomitant]
     Active Substance: INSULIN GLULISINE
  12. DOCUSATE [Concomitant]
     Active Substance: DOCUSATE
  13. CASPOFUNGIN [Suspect]
     Active Substance: CASPOFUNGIN
     Dates: start: 201701, end: 201703
  14. VORICONAZOLE. [Suspect]
     Active Substance: VORICONAZOLE
     Indication: ENDOCARDITIS CANDIDA
     Dates: start: 20171031, end: 20171106
  15. CEFUROXIME. [Concomitant]
     Active Substance: CEFUROXIME
  16. DIHYDROCODEINE TARTRATE [Concomitant]
     Active Substance: DIHYDROCODEINE BITARTRATE
  17. SALBUTAMOL [Concomitant]
     Active Substance: ALBUTEROL
  18. FORTISIP [Concomitant]
     Active Substance: CARBOHYDRATES\FATTY ACIDS\MINERALS\PROTEIN\VITAMINS
  19. ALLOPURINOL. [Concomitant]
     Active Substance: ALLOPURINOL
  20. FUROSEMIDE. [Concomitant]
     Active Substance: FUROSEMIDE
  21. ONDANSETRON HYDROCHLORIDE. [Concomitant]
     Active Substance: ONDANSETRON HYDROCHLORIDE
  22. CORSODYL [Concomitant]
     Active Substance: CHLORHEXIDINE GLUCONATE
  23. ZOPICLONE [Concomitant]
     Active Substance: ZOPICLONE
  24. SANDO-K [Concomitant]
     Active Substance: POTASSIUM BICARBONATE\POTASSIUM CHLORIDE
  25. LACTULOSE. [Concomitant]
     Active Substance: LACTULOSE
  26. GELOPLASMA [Concomitant]
  27. PARACETAMOL [Concomitant]
     Active Substance: ACETAMINOPHEN
  28. LANSOPRAZOLE. [Concomitant]
     Active Substance: LANSOPRAZOLE
  29. POTASSIUM CHLORIDE. [Concomitant]
     Active Substance: POTASSIUM CHLORIDE
  30. CASSIA [Concomitant]
  31. GLYCERYL TRINITRATE [Concomitant]
     Active Substance: NITROGLYCERIN
  32. GAVISCON ADVANCE [Concomitant]
     Active Substance: POTASSIUM BICARBONATE\SODIUM ALGINATE
  33. CANDESARTAN CILEXETIL. [Concomitant]
     Active Substance: CANDESARTAN CILEXETIL
  34. RANITIDINE HYDROCHLORIDE. [Concomitant]
     Active Substance: RANITIDINE HYDROCHLORIDE
  35. GENTAMICIN SULFATE. [Concomitant]
     Active Substance: GENTAMICIN SULFATE
  36. PHOSPHATE [Concomitant]
     Active Substance: UNSPECIFIED INGREDIENT
  37. ACETYLSALICYLIC ACID [Concomitant]
     Active Substance: ASPIRIN

REACTIONS (2)
  - Blindness [Unknown]
  - Hypoacusis [Unknown]
